FAERS Safety Report 5988630-7 (Version None)
Quarter: 2008Q4

REPORT INFORMATION
  Report Type: 
  Country: None (occurrence: None)
  Receive Date: 20081208
  Receipt Date: 20081208
  Transmission Date: 20090506
  Serious: Yes (Life-Threatening)
  Sender: FDA-Public Use
  Company Number: None

PATIENT
  Age: 54 Year
  Sex: Male
  Weight: 129.2752 kg

DRUGS (1)
  1. ISOSORBIDE MONONITRATE [Suspect]
     Indication: ANGINA PECTORIS
     Dates: start: 20080724, end: 20080724

REACTIONS (3)
  - MUSCLE SPASMS [None]
  - PAIN [None]
  - PRODUCT QUALITY ISSUE [None]
